FAERS Safety Report 8195430 (Version 2)
Quarter: 2013Q2

REPORT INFORMATION
  Report Type: Spontaneous
  Country: US (occurrence: US)
  Receive Date: 20111024
  Receipt Date: 20130411
  Transmission Date: 20140414
  Serious: Yes (Hospitalization, Other)
  Sender: FDA-Public Use
  Company Number: US-ROCHE-784879

PATIENT
  Sex: Male
  Weight: 45.4 kg

DRUGS (3)
  1. ACCUTANE [Suspect]
     Indication: ACNE CYSTIC
     Dosage: 10 DOSES
     Route: 065
     Dates: start: 19991017, end: 20000216
  2. ACCUTANE [Suspect]
     Route: 065
  3. DOXYCYCLINE [Concomitant]
     Indication: ACNE CYSTIC
     Route: 048
     Dates: start: 19991005

REACTIONS (9)
  - Crohn^s disease [Unknown]
  - Inflammatory bowel disease [Unknown]
  - Anxiety [Unknown]
  - Depression [Unknown]
  - Large intestine perforation [Unknown]
  - Large intestine polyp [Unknown]
  - Irritable bowel syndrome [Unknown]
  - Headache [Unknown]
  - Arthritis [Unknown]
